FAERS Safety Report 4564796-0 (Version None)
Quarter: 2005Q1

REPORT INFORMATION
  Report Type: 
  Country: None (occurrence: None)
  Receive Date: 20050128
  Receipt Date: 20050120
  Transmission Date: 20050727
  Serious: Yes (Other)
  Sender: FDA-Public Use
  Company Number: JP-MERCK-0501USA03629

PATIENT
  Age: 82 Year
  Sex: Female

DRUGS (6)
  1. ZOCOR [Suspect]
     Indication: HYPERLIPIDAEMIA
     Route: 048
     Dates: start: 19991217, end: 20041029
  2. BASEN [Concomitant]
     Route: 048
  3. MUCODYNE [Concomitant]
     Route: 048
  4. ADONA [Concomitant]
     Route: 065
  5. CONIEL [Concomitant]
     Route: 065
  6. SERRAPEPTASE [Concomitant]
     Route: 065

REACTIONS (2)
  - BLOOD CREATINE PHOSPHOKINASE INCREASED [None]
  - PAIN IN EXTREMITY [None]
